FAERS Safety Report 8084551-7 (Version None)
Quarter: 2012Q1

REPORT INFORMATION
  Report Type: 
  Country: None (occurrence: None)
  Receive Date: 20120128
  Receipt Date: 20110324
  Transmission Date: 20120608
  Serious: No
  Sender: FDA-Public Use
  Company Number: US-ABBOTT-11P-163-0714262-00

PATIENT
  Sex: Female
  Weight: 80.812 kg

DRUGS (3)
  1. LUXIQ [Concomitant]
     Indication: DRY SKIN
  2. HUMIRA [Suspect]
     Indication: PSORIASIS
     Dates: start: 20110310
  3. CLOBEX [Concomitant]
     Indication: PRODUCT USED FOR UNKNOWN INDICATION

REACTIONS (3)
  - FEELING HOT [None]
  - PARAESTHESIA [None]
  - FLUSHING [None]
